FAERS Safety Report 17465198 (Version 1)
Quarter: 2020Q1

REPORT INFORMATION
  Report Type: Spontaneous
  Country: US (occurrence: US)
  Receive Date: 20200226
  Receipt Date: 20200226
  Transmission Date: 20200409
  Serious: Yes (Hospitalization, Other)
  Sender: FDA-Public Use
  Company Number: US-AMGEN-USASP2020027035

PATIENT
  Age: 87 Year
  Sex: Male

DRUGS (1)
  1. PROCRIT [Suspect]
     Active Substance: ERYTHROPOIETIN
     Indication: END STAGE RENAL DISEASE
     Dosage: UNK
     Route: 065

REACTIONS (17)
  - Therapeutic response unexpected [Unknown]
  - Infection [Recovered/Resolved]
  - Abnormal weight gain [Not Recovered/Not Resolved]
  - Stem cell transplant [Unknown]
  - Poisoning [Unknown]
  - Adverse event [Not Recovered/Not Resolved]
  - Myocardial infarction [Recovered/Resolved]
  - Decreased activity [Not Recovered/Not Resolved]
  - General physical health deterioration [Unknown]
  - Off label use [Unknown]
  - Wheelchair user [Unknown]
  - Therapeutic product effect decreased [Unknown]
  - Prostatic disorder [Not Recovered/Not Resolved]
  - Liver disorder [Not Recovered/Not Resolved]
  - Cerebrovascular accident [Recovered/Resolved]
  - Asthenia [Unknown]
  - Body height decreased [Not Recovered/Not Resolved]
